FAERS Safety Report 5281651-1 (Version None)
Quarter: 2007Q1

REPORT INFORMATION
  Report Type: 
  Country: None (occurrence: None)
  Receive Date: 20061215
  Receipt Date: 20060614
  Transmission Date: 20070707
  Serious: Yes (Hospitalization, Other)
  Sender: FDA-Public Use
  Company Number: HQWYE251216JUN06

PATIENT
  Age: 53 Year
  Sex: Male
  Weight: 65.83 kg

DRUGS (5)
  1. EFFEXOR XR [Suspect]
     Dosage: SEE IMAGE
     Dates: start: 20060101, end: 20060101
  2. EFFEXOR XR [Suspect]
     Dosage: SEE IMAGE
     Dates: start: 20060301, end: 20060101
  3. EFFEXOR XR [Suspect]
     Dosage: SEE IMAGE
     Dates: start: 20060101, end: 20060510
  4. ANDROGEL [Concomitant]
  5. AMITRIPTYLINE HCL [Concomitant]

REACTIONS (3)
  - AGITATED DEPRESSION [None]
  - MANIA [None]
  - SUICIDAL IDEATION [None]
